FAERS Safety Report 15111467 (Version 1)
Quarter: 2018Q3

REPORT INFORMATION
  Report Type: Spontaneous
  Country: FR (occurrence: FR)
  Receive Date: 20180705
  Receipt Date: 20180705
  Transmission Date: 20181010
  Serious: Yes (Death, Other)
  Sender: FDA-Public Use
  Company Number: FR-ASTRAZENECA-2018SE83713

PATIENT
  Age: 68 Year
  Sex: Female

DRUGS (6)
  1. HEPARIN [Interacting]
     Active Substance: HEPARIN SODIUM
     Indication: ACUTE CORONARY SYNDROME
     Dosage: 4000.0IU ONCE/SINGLE ADMINISTRATION
     Route: 040
     Dates: start: 20180507, end: 20180507
  2. ASPEGIC [Interacting]
     Active Substance: ASPIRIN DL-LYSINE
     Indication: ACUTE CORONARY SYNDROME
     Dosage: 125.0MG ONCE/SINGLE ADMINISTRATION
     Route: 042
     Dates: start: 20180507, end: 20180507
  3. BRILIQUE [Suspect]
     Active Substance: TICAGRELOR
     Indication: ACUTE CORONARY SYNDROME
     Dosage: 180.0MG ONCE/SINGLE ADMINISTRATION
     Route: 048
     Dates: start: 20180507, end: 20180507
  4. KARDEGIC [Interacting]
     Active Substance: ASPIRIN DL-LYSINE
     Indication: PERIPHERAL ARTERIAL OCCLUSIVE DISEASE
     Route: 048
     Dates: end: 20180507
  5. PREVISCAN (FLUINDIONE) [Interacting]
     Active Substance: FLUINDIONE
     Indication: ATRIAL FIBRILLATION
     Route: 048
     Dates: end: 20180506
  6. HEPARIN [Interacting]
     Active Substance: HEPARIN SODIUM
     Indication: ACUTE CORONARY SYNDROME
     Dosage: 21500.0IU ONCE/SINGLE ADMINISTRATION
     Route: 042
     Dates: start: 20180507, end: 20180507

REACTIONS (4)
  - Melaena [Recovered/Resolved]
  - Cardiogenic shock [None]
  - Anaemia [Recovered/Resolved]
  - Drug interaction [Recovered/Resolved]

NARRATIVE: CASE EVENT DATE: 20180507
